FAERS Safety Report 9858649 (Version 1)
Quarter: 2014Q1

REPORT INFORMATION
  Report Type: Spontaneous
  Country: US (occurrence: None)
  Receive Date: 20140129
  Receipt Date: 20140129
  Transmission Date: 20141002
  Serious: Yes (Death)
  Sender: FDA-Public Use
  Company Number: 2014AP000527

PATIENT
  Age: 33 Year
  Sex: Female

DRUGS (7)
  1. METFORMIN HCL TABLETS [Suspect]
     Dosage: 500 MG; ; PO
     Route: 048
  2. HYDROXYCHLOROQUINE [Suspect]
     Dosage: 200 MG;  ; PO
     Route: 048
  3. ACETAMINOPHEN W/DIPHENHYDRAMINE HYDROCHLORIDE [Suspect]
     Dosage: ; PO
     Route: 048
  4. HYDROXYZINE [Suspect]
     Dosage: ; PO
     Route: 048
  5. COCAINE [Suspect]
     Dosage: ; PO
     Route: 048
  6. ALPRAZOLAM [Suspect]
     Dosage: ; PO
     Route: 048
  7. PREGABALIN [Suspect]
     Dosage: 150 MG;  ; PO
     Route: 048

REACTIONS (5)
  - Bradycardia [None]
  - Hypotension [None]
  - Completed suicide [None]
  - Respiratory depression [None]
  - Toxicity to various agents [None]
